FAERS Safety Report 7112452-7 (Version None)
Quarter: 2010Q4

REPORT INFORMATION
  Report Type: 
  Country: None (occurrence: None)
  Receive Date: 20101119
  Receipt Date: 20101111
  Transmission Date: 20110411
  Serious: Yes (Other)
  Sender: FDA-Public Use
  Company Number: US-PFIZER INC-2010146357

PATIENT
  Sex: Female
  Weight: 77.098 kg

DRUGS (7)
  1. XANAX [Suspect]
     Indication: MYOSITIS
     Dosage: 1 MG, AS NEEDED
     Route: 048
     Dates: start: 20020101
  2. XANAX [Suspect]
     Indication: NEURITIS
  3. BENADRYL [Suspect]
     Indication: RASH
     Dosage: UNK
     Dates: start: 20100101
  4. MOTRIN IB [Concomitant]
     Indication: PAIN IN EXTREMITY
     Dosage: 200 MG, UNK
  5. CARDIZEM [Concomitant]
     Indication: HYPERTENSION
     Dosage: 240 MG, 1X/DAY
  6. VASOTEC [Concomitant]
     Indication: HYPERTENSION
     Dosage: 20 MG, UNK
  7. DYAZIDE [Concomitant]
     Indication: HYPERTENSION
     Dosage: 37.5/25 MG, UNK

REACTIONS (4)
  - MYALGIA [None]
  - MYOSITIS [None]
  - RASH [None]
  - REACTION TO COLOURING [None]
